FAERS Safety Report 7633272-0 (Version None)
Quarter: 2011Q3

REPORT INFORMATION
  Report Type: 
  Country: None (occurrence: None)
  Receive Date: 20110725
  Receipt Date: 20110718
  Transmission Date: 20111222
  Serious: Yes (Hospitalization)
  Sender: FDA-Public Use
  Company Number: US-ROCHE-791451

PATIENT
  Sex: Female
  Weight: 71.9 kg

DRUGS (8)
  1. PROTONIX [Concomitant]
  2. PROCHLORPERAZINE [Concomitant]
  3. BEVACIZUMAB [Suspect]
     Route: 065
     Dates: start: 20110302, end: 20110622
  4. PRISTIQ [Concomitant]
  5. SENNA [Concomitant]
  6. WELLBUTRIN [Concomitant]
  7. CAPECITABINE [Suspect]
     Dosage: FREQUENCY: 2 WEEKLY WITH ONE WEEK OFF.
     Route: 065
     Dates: start: 20110302, end: 20110628
  8. GEMCITABINE [Suspect]
     Dosage: FREQUENCY: 2 WEEKLY WITH 1 WEEK OFF.
     Route: 065
     Dates: start: 20110302, end: 20110622

REACTIONS (1)
  - HYPONATRAEMIA [None]
